FAERS Safety Report 23437082 (Version 1)
Quarter: 2024Q1

REPORT INFORMATION
  Report Type: Spontaneous
  Country: NL (occurrence: None)
  Receive Date: 20240124
  Receipt Date: 20240124
  Transmission Date: 20240409
  Serious: Yes (Other)
  Sender: FDA-Public Use
  Company Number: 2024A003011

PATIENT
  Age: 23 Year
  Sex: Male

DRUGS (1)
  1. KOSELUGO [Suspect]
     Active Substance: SELUMETINIB
     Indication: Neurofibroma
     Route: 048

REACTIONS (2)
  - Paronychia [Unknown]
  - Nail operation [Unknown]

NARRATIVE: CASE EVENT DATE: 20230906
